FAERS Safety Report 9353678 (Version 2)
Quarter: 2013Q3

REPORT INFORMATION
  Report Type: Report from Study
  Country: FR (occurrence: FR)
  Receive Date: 20130618
  Receipt Date: 20130829
  Transmission Date: 20140515
  Serious: Yes (Hospitalization)
  Sender: FDA-Public Use
  Company Number: FR-CELGENEUS-056-21880-13060911

PATIENT
  Age: 50 Year
  Sex: Male

DRUGS (9)
  1. REVLIMID [Suspect]
     Indication: PLASMA CELL MYELOMA
     Route: 048
     Dates: start: 20120807, end: 20130605
  2. REVLIMID [Suspect]
     Route: 048
     Dates: start: 20130612
  3. BORTEZOMIB [Suspect]
     Indication: PLASMA CELL MYELOMA
     Route: 065
     Dates: start: 20120807, end: 20130301
  4. DEXAMETHASONE [Suspect]
     Indication: PLASMA CELL MYELOMA
     Route: 065
     Dates: start: 20120807, end: 20130302
  5. CACIT D3 [Concomitant]
     Indication: PLASMA CELL MYELOMA
     Route: 065
  6. ZOMETA [Concomitant]
     Indication: PLASMA CELL MYELOMA
     Route: 041
  7. DUROGESIC [Concomitant]
     Indication: BONE PAIN
     Route: 065
  8. OXYNORM [Concomitant]
     Indication: BONE PAIN
     Route: 065
  9. ASPIRINE [Concomitant]
     Indication: BONE PAIN
     Route: 065

REACTIONS (1)
  - Lung disorder [Recovered/Resolved]
